FAERS Safety Report 4875517-6 (Version None)
Quarter: 2005Q4

REPORT INFORMATION
  Report Type: 
  Country: None (occurrence: None)
  Receive Date: 20051130
  Receipt Date: 20041011
  Transmission Date: 20060501
  Serious: No
  Sender: FDA-Public Use
  Company Number: CIP03002594

PATIENT
  Age: 77 Year
  Sex: Male
  Weight: 72.6 kg

DRUGS (3)
  1. DIDRONEL (ETIDRONATE DISODIUM) TABLET, 400MG [Suspect]
     Indication: OSTEITIS DEFORMANS
     Dosage: 400 MG DAILY, ORAL
     Route: 048
     Dates: start: 20030201, end: 20030801
  2. HYTRIN [Suspect]
     Indication: BENIGN PROSTATIC HYPERPLASIA
     Dosage: 5 MG DAILY, ORAL
     Route: 048
     Dates: start: 20000101
  3. METAMUCIL-2 [Suspect]
     Dosage: ORAL
     Route: 048
     Dates: start: 20010101

REACTIONS (2)
  - COUGH [None]
  - PRODUCTIVE COUGH [None]
